FAERS Safety Report 11110522 (Version 1)
Quarter: 2015Q2

REPORT INFORMATION
  Report Type: Spontaneous
  Country: US (occurrence: US)
  Receive Date: 20150513
  Receipt Date: 20150513
  Transmission Date: 20150821
  Serious: Yes (Hospitalization)
  Sender: FDA-Public Use
  Company Number: US-PFIZER INC-2015159791

PATIENT
  Age: 51 Year
  Sex: Male
  Weight: 55 kg

DRUGS (9)
  1. TESSALON [Concomitant]
     Active Substance: BENZONATATE
     Indication: COUGH
     Dosage: 200 MG, EVERY FOUR TO SIX HOURS
     Route: 048
     Dates: start: 201404
  2. TRAMADOL [Concomitant]
     Active Substance: TRAMADOL
     Indication: PAIN
     Dosage: 100 MG, DAILY
     Route: 048
     Dates: start: 201404
  3. FLUCONAZOLE. [Suspect]
     Active Substance: FLUCONAZOLE
     Indication: PYREXIA
     Dosage: 200 MG, DAILY
     Route: 048
     Dates: start: 201404
  4. DUONEB [Concomitant]
     Active Substance: ALBUTEROL SULFATE\IPRATROPIUM BROMIDE
     Indication: CHRONIC OBSTRUCTIVE PULMONARY DISEASE
     Dosage: UNK, 3X/DAY
     Route: 048
     Dates: start: 201404
  5. TRAMADOL [Concomitant]
     Active Substance: TRAMADOL
     Indication: PAIN
     Dosage: 50 MG, AS NEEDED (EVERY FOUR TO SIX HOURS)
     Route: 048
     Dates: start: 201404
  6. REMERON [Concomitant]
     Active Substance: MIRTAZAPINE
     Indication: WEIGHT INCREASED
     Dosage: 15 MG, DAILY
     Route: 048
     Dates: start: 201404
  7. REMERON [Concomitant]
     Active Substance: MIRTAZAPINE
     Indication: SLEEP DISORDER
  8. ALBUTEROL. [Concomitant]
     Active Substance: ALBUTEROL
     Indication: PYREXIA
     Dosage: UNK
     Route: 048
     Dates: start: 201404
  9. ALBUTEROL. [Concomitant]
     Active Substance: ALBUTEROL
     Indication: CHRONIC OBSTRUCTIVE PULMONARY DISEASE

REACTIONS (16)
  - Chest pain [Not Recovered/Not Resolved]
  - Diarrhoea [Not Recovered/Not Resolved]
  - Vomiting [Not Recovered/Not Resolved]
  - Tendonitis [Unknown]
  - Blood pressure increased [Not Recovered/Not Resolved]
  - Dry mouth [Not Recovered/Not Resolved]
  - Retching [Not Recovered/Not Resolved]
  - Epicondylitis [Unknown]
  - Gastritis [Unknown]
  - Hyperhidrosis [Not Recovered/Not Resolved]
  - Nausea [Not Recovered/Not Resolved]
  - Weight decreased [Recovered/Resolved]
  - Bradycardia [Not Recovered/Not Resolved]
  - Headache [Not Recovered/Not Resolved]
  - Night sweats [Unknown]
  - Skin odour abnormal [Not Recovered/Not Resolved]

NARRATIVE: CASE EVENT DATE: 201406
